FAERS Safety Report 6788255-X (Version None)
Quarter: 2010Q2

REPORT INFORMATION
  Report Type: 
  Country: None (occurrence: None)
  Receive Date: 20100623
  Receipt Date: 20080404
  Transmission Date: 20101027
  Serious: No
  Sender: FDA-Public Use
  Company Number: US-PFIZER INC-2008014452

PATIENT
  Age: 74 Year
  Sex: Male

DRUGS (1)
  1. PROCARDIA [Suspect]

REACTIONS (6)
  - DIZZINESS [None]
  - ERYTHEMA [None]
  - MUSCLE SPASMS [None]
  - NAUSEA [None]
  - PALPITATIONS [None]
  - PYREXIA [None]
